FAERS Safety Report 9675902 (Version 2)
Quarter: 2013Q4

REPORT INFORMATION
  Report Type: Spontaneous
  Country: US (occurrence: US)
  Receive Date: 20131107
  Receipt Date: 20131217
  Transmission Date: 20140711
  Serious: Yes (Other)
  Sender: FDA-Public Use
  Company Number: US-PFIZER INC-2013317400

PATIENT
  Age: 64 Year
  Sex: Female
  Weight: 74.8 kg

DRUGS (6)
  1. LYRICA [Suspect]
     Indication: PAIN IN EXTREMITY
     Dosage: 50 MG, DAILY
     Route: 048
     Dates: start: 20131030, end: 20131103
  2. LYRICA [Suspect]
     Dosage: 50 MG, 5 DAYS (TRIAL BASE)
     Route: 048
     Dates: start: 20131030, end: 20131102
  3. EXELON [Concomitant]
     Indication: DEMENTIA ALZHEIMER^S TYPE
     Dosage: 250 MG, DAILY
     Route: 062
  4. NAMENDA [Concomitant]
     Indication: DEMENTIA ALZHEIMER^S TYPE
     Dosage: UNK
  5. ESCITALOPRAM [Concomitant]
     Indication: DEPRESSION
     Dosage: UNK
  6. VITAMIN D [Concomitant]
     Dosage: UNK

REACTIONS (10)
  - Cerebrovascular accident [Recovering/Resolving]
  - Convulsion [Unknown]
  - Musculoskeletal deformity [Recovering/Resolving]
  - Tremor [Recovering/Resolving]
  - Dizziness [Recovering/Resolving]
  - Nausea [Recovering/Resolving]
  - Vomiting [Recovering/Resolving]
  - Speech disorder [Recovering/Resolving]
  - Fall [Unknown]
  - Weight fluctuation [Unknown]
